FAERS Safety Report 7265487-8 (Version None)
Quarter: 2011Q1

REPORT INFORMATION
  Report Type: 
  Country: None (occurrence: None)
  Receive Date: 20110131
  Receipt Date: 20110124
  Transmission Date: 20110831
  Serious: Yes (Death, Hospitalization, Other)
  Sender: FDA-Public Use
  Company Number: PHHY2011US02178

PATIENT
  Sex: Male

DRUGS (11)
  1. CARAFATE [Concomitant]
     Dosage: 1 G, UNK
     Route: 048
  2. HYDROCODONE [Concomitant]
     Dosage: 5 MG, UNK
     Route: 048
  3. GLEEVEC [Suspect]
     Indication: GASTRIC CANCER
     Dosage: 400 MG, QD
     Route: 048
     Dates: start: 20100729
  4. DECADRON [Concomitant]
     Dosage: 2 MG, UNK
     Route: 048
  5. FERROUS SULFATE TAB [Concomitant]
     Dosage: 325 MG, UNK
  6. ALBUTEROL [Concomitant]
  7. XENADERM [Concomitant]
  8. LASIX [Concomitant]
     Dosage: 80 MG, BID
     Route: 048
  9. SYNTHROID [Concomitant]
     Dosage: 50 MG, DAILY
     Route: 048
  10. PRILOSEC [Concomitant]
     Dosage: 20 MG, BID
  11. FLOMAX [Concomitant]
     Dosage: 0.4 MG, UNK

REACTIONS (50)
  - HEPATIC FIBROSIS [None]
  - METASTASES TO BONE [None]
  - MELAENA [None]
  - DYSPNOEA EXERTIONAL [None]
  - ASCITES [None]
  - BLOOD CALCIUM DECREASED [None]
  - LYMPHADENITIS [None]
  - METASTASIS [None]
  - RENAL FAILURE ACUTE [None]
  - RENAL TUBULAR ACIDOSIS [None]
  - HYPOTENSION [None]
  - EMOTIONAL DISTRESS [None]
  - BONE LESION [None]
  - METASTASES TO LIVER [None]
  - HYPONATRAEMIA [None]
  - GASTRITIS [None]
  - BLOOD THYROID STIMULATING HORMONE INCREASED [None]
  - EROSIVE OESOPHAGITIS [None]
  - DIVERTICULUM [None]
  - HYPOTHYROIDISM [None]
  - GENERALISED OEDEMA [None]
  - OEDEMA PERIPHERAL [None]
  - FAECES DISCOLOURED [None]
  - HYPERTENSION [None]
  - BURSITIS [None]
  - STASIS DERMATITIS [None]
  - DEATH [None]
  - HEPATIC CIRRHOSIS [None]
  - METASTASES TO PERITONEUM [None]
  - LYMPHADENOPATHY [None]
  - HYPERTENSIVE NEPHROPATHY [None]
  - PAIN [None]
  - DUODENITIS [None]
  - HAEMORRHOIDS [None]
  - POLYP [None]
  - FLUID OVERLOAD [None]
  - ABDOMINAL DISTENSION [None]
  - PNEUMONIA [None]
  - DIZZINESS [None]
  - STAPHYLOCOCCAL SEPSIS [None]
  - BACTERIAL INFECTION [None]
  - CELLULITIS [None]
  - GENERAL PHYSICAL HEALTH DETERIORATION [None]
  - DISCOMFORT [None]
  - PEPTIC ULCER [None]
  - HYPERKALAEMIA [None]
  - GASTROINTESTINAL HAEMORRHAGE [None]
  - ANAEMIA [None]
  - ASTHENIA [None]
  - TROPONIN I INCREASED [None]
